FAERS Safety Report 7527437-6 (Version None)
Quarter: 2011Q2

REPORT INFORMATION
  Report Type: 
  Country: None (occurrence: None)
  Receive Date: 20110512
  Receipt Date: 20100927
  Transmission Date: 20111010
  Serious: Yes (Hospitalization)
  Sender: FDA-Public Use
  Company Number: 106460

PATIENT
  Age: 65 Year
  Sex: Male
  Weight: 80 kg

DRUGS (1)
  1. PAMIDRONATE DISODIUM [Suspect]
     Indication: METASTATIC RENAL CELL CARCINOMA

REACTIONS (1)
  - PAIN [None]
